FAERS Safety Report 4457418-0 (Version None)
Quarter: 2004Q3

REPORT INFORMATION
  Report Type: 
  Country: None (occurrence: None)
  Receive Date: 20040921
  Receipt Date: 20040903
  Transmission Date: 20050211
  Serious: Yes (Hospitalization)
  Sender: FDA-Public Use
  Company Number: A0523029A

PATIENT
  Age: 74 Year
  Sex: Male
  Weight: 95.9811 kg

DRUGS (1)
  1. AVANDIA [Suspect]
     Indication: DIABETES MELLITUS
     Dosage: 4 MG/ PER DAY/ ORAL
     Route: 048
     Dates: start: 20040623

REACTIONS (1)
  - CHOLECYSTITIS [None]
